FAERS Safety Report 13334465 (Version 1)
Quarter: 2017Q1

REPORT INFORMATION
  Report Type: Spontaneous
  Country: US (occurrence: US)
  Receive Date: 20170314
  Receipt Date: 20170314
  Transmission Date: 20170428
  Serious: No
  Sender: FDA-Public Use
  Company Number: US-JNJFOC-20170118218

PATIENT
  Sex: Female
  Weight: 57 kg

DRUGS (10)
  1. IMBRUVICA [Suspect]
     Active Substance: IBRUTINIB
     Indication: PRODUCT USED FOR UNKNOWN INDICATION
     Route: 048
     Dates: start: 20161012
  2. VITAMIN C [Concomitant]
     Active Substance: ASCORBIC ACID
  3. GLUCOSAMINE SULPHATE [Concomitant]
     Active Substance: GLUCOSAMINE
  4. ASPIRIN. [Concomitant]
     Active Substance: ASPIRIN
  5. CALCIUM ACETATE. [Concomitant]
     Active Substance: CALCIUM ACETATE
  6. VITAMIN B COMPLEX [Concomitant]
     Active Substance: CYANOCOBALAMIN\DEXPANTHENOL\NIACINAMIDE\PYRIDOXINE HYDROCHLORIDE\RIBOFLAVIN 5^-PHOSPHATE SODIUM\THIAMINE HYDROCHLORIDE\VITAMIN B COMPLEX
  7. VITAMIN E [Concomitant]
     Active Substance: .ALPHA.-TOCOPHEROL
  8. CALCIUM [Concomitant]
     Active Substance: CALCIUM
  9. CHONDROITIN SULFATE [Concomitant]
     Active Substance: SODIUM CHONDROITIN SULFATE
  10. VITAMIN B [Concomitant]
     Active Substance: VITAMIN B

REACTIONS (3)
  - Alopecia [Unknown]
  - Retching [Unknown]
  - Pain in extremity [Unknown]

NARRATIVE: CASE EVENT DATE: 2016
